FAERS Safety Report 15370064 (Version 1)
Quarter: 2018Q3

REPORT INFORMATION
  Report Type: Spontaneous
  Country: TW (occurrence: TW)
  Receive Date: 20180911
  Receipt Date: 20180911
  Transmission Date: 20181010
  Serious: Yes (Other)
  Sender: FDA-Public Use
  Company Number: TW-BAYER-2018-165299

PATIENT

DRUGS (5)
  1. OXALIPLATIN. [Concomitant]
     Active Substance: OXALIPLATIN
  2. STIVARGA [Suspect]
     Active Substance: REGORAFENIB
     Dosage: UNK
  3. IRINOTECAN [Concomitant]
     Active Substance: IRINOTECAN
  4. STIVARGA [Suspect]
     Active Substance: REGORAFENIB
     Dosage: 120 MG, 3 WEEKS ON, 1 WEEK OFF
  5. 5 FLUOROURACIL [Concomitant]
     Active Substance: FLUOROURACIL
     Dosage: UNK

REACTIONS (2)
  - Neoplasm progression [None]
  - Alanine aminotransferase increased [Recovered/Resolved]
